FAERS Safety Report 6018963-X (Version None)
Quarter: 2008Q4

REPORT INFORMATION
  Report Type: 
  Country: None (occurrence: None)
  Receive Date: 20081224
  Receipt Date: 20081216
  Transmission Date: 20090506
  Serious: Yes (Hospitalization)
  Sender: FDA-Public Use
  Company Number: US-JNJFOC-20081205380

PATIENT
  Sex: Male
  Weight: 85.28 kg

DRUGS (13)
  1. REMICADE [Suspect]
     Route: 042
  2. REMICADE [Suspect]
     Indication: CROHN'S DISEASE
     Dosage: DATES OF FIRST AND SECOND INFUSIONS UNKNOWN
     Route: 042
  3. MESALAMINE [Concomitant]
     Indication: CROHN'S DISEASE
     Dosage: THERAPY DURATION 1 YEAR
  4. METFORMIN HCL [Concomitant]
  5. ENALAPRIL MALEATE [Concomitant]
     Indication: HYPERTENSION
     Dosage: THERAPY DURATION 2 YEARS
  6. PLAVIX [Concomitant]
     Indication: PERIPHERAL ARTERIAL OCCLUSIVE DISEASE
     Dosage: THERAPY DURATION 1 YEAR
  7. ROSUVASTATIN [Concomitant]
     Indication: BLOOD CHOLESTEROL
     Dosage: THERAPY DURATION 2 YEARS
  8. PERCOCET [Concomitant]
  9. ASPIRIN [Concomitant]
     Indication: ANTICOAGULANT THERAPY
  10. SULFAMETHAZOLE [Concomitant]
  11. OMEPRAZOLE [Concomitant]
     Indication: GASTRIC DISORDER
  12. LIPAZIDE [Concomitant]
  13. ISOSORBIDE MONONITRATE [Concomitant]

REACTIONS (6)
  - CONSTIPATION [None]
  - FURUNCLE [None]
  - MUSCLE SPASMS [None]
  - SKIN LESION [None]
  - ULCER [None]
  - VOMITING [None]
